FAERS Safety Report 25645194 (Version 1)
Quarter: 2025Q3

REPORT INFORMATION
  Report Type: Other
  Country: NZ (occurrence: NZ)
  Receive Date: 20250805
  Receipt Date: 20250805
  Transmission Date: 20251020
  Serious: Yes (Other)
  Sender: Atnahs Healthcare
  Company Number: NZ-ATNAHS-2025-PMNV-NZ000252

PATIENT

DRUGS (2)
  1. NAPROXEN [Suspect]
     Active Substance: NAPROXEN
     Indication: Product used for unknown indication
     Route: 065
  2. ENALAPRIL [Concomitant]
     Active Substance: ENALAPRIL
     Indication: Product used for unknown indication

REACTIONS (4)
  - Haematemesis [Unknown]
  - Upper gastrointestinal haemorrhage [Unknown]
  - Dizziness [Unknown]
  - Fall [Unknown]
